FAERS Safety Report 10220465 (Version 2)
Quarter: 2014Q3

REPORT INFORMATION
  Report Type: Report from Study
  Country: JP (occurrence: JP)
  Receive Date: 20140606
  Receipt Date: 20140715
  Transmission Date: 20150326
  Serious: Yes (Other)
  Sender: FDA-Public Use
  Company Number: JP-009507513-1406JPN000994

PATIENT
  Age: 45 Year
  Sex: Male

DRUGS (2)
  1. PEGINTRON [Suspect]
     Active Substance: PEGINTERFERON ALFA-2B
     Indication: HEPATITIS C
     Dosage: 1.0-1.5 UG/KG/WEEK; DAILY DOSE UNKNOWN
     Route: 065
  2. REBETOL [Suspect]
     Active Substance: RIBAVIRIN
     Indication: HEPATITIS C
     Dosage: DAILY DOSE UNKNOWN
     Route: 048

REACTIONS (1)
  - Transplant rejection [Unknown]
